FAERS Safety Report 10209322 (Version 1)
Quarter: 2014Q2

REPORT INFORMATION
  Report Type: Spontaneous
  Country: US (occurrence: US)
  Receive Date: 20140531
  Receipt Date: 20140531
  Transmission Date: 20141212
  Serious: Yes (Death)
  Sender: FDA-Public Use
  Company Number: US-ROCHE-1410982

PATIENT
  Age: 58 Year
  Sex: Male

DRUGS (3)
  1. XELODA [Suspect]
     Indication: COLON CANCER
     Route: 048
     Dates: start: 20140228
  2. HUMULIN [Concomitant]
  3. UNIVASC [Concomitant]

REACTIONS (1)
  - Death [Fatal]
